FAERS Safety Report 14166923 (Version 2)
Quarter: 2017Q4

REPORT INFORMATION
  Report Type: Spontaneous
  Country: US (occurrence: US)
  Receive Date: 20171107
  Receipt Date: 20171110
  Transmission Date: 20180321
  Serious: Yes (Hospitalization, Other)
  Sender: FDA-Public Use
  Company Number: US-BAYER-2017-214059

PATIENT
  Age: 52 Year
  Sex: Female

DRUGS (1)
  1. GADAVIST [Suspect]
     Active Substance: GADOBUTROL
     Indication: NUCLEAR MAGNETIC RESONANCE IMAGING
     Dosage: 10 ML, ONCE
     Route: 042
     Dates: start: 20171027, end: 20171027

REACTIONS (1)
  - Contrast media reaction [None]

NARRATIVE: CASE EVENT DATE: 20171027
